FAERS Safety Report 21526213 (Version 5)
Quarter: 2023Q1

REPORT INFORMATION
  Report Type: Spontaneous
  Country: JP (occurrence: JP)
  Receive Date: 20221031
  Receipt Date: 20230119
  Transmission Date: 20230418
  Serious: Yes (Other)
  Sender: FDA-Public Use
  Company Number: JP-KYOWAKIRIN-2022AKK016438

PATIENT

DRUGS (14)
  1. PEGFILGRASTIM [Suspect]
     Active Substance: PEGFILGRASTIM
     Indication: Colony stimulating factor therapy
     Dosage: UNK, 1X/2 WEEKS
     Route: 065
     Dates: start: 20210322, end: 20210517
  2. DOCETAXEL [Concomitant]
     Active Substance: DOCETAXEL
     Indication: Breast cancer
     Dosage: UNK UNK, 1X/3 WEEKS
     Route: 041
     Dates: start: 20210511, end: 20210730
  3. ALOXI [Concomitant]
     Active Substance: PALONOSETRON HYDROCHLORIDE
     Indication: Prophylaxis of nausea and vomiting
     Dosage: 0.75 MILLIGRAM, Q2WK
     Route: 042
     Dates: start: 20210319, end: 20210430
  4. DEXAMETHASONE SODIUM PHOSPHATE [Concomitant]
     Active Substance: DEXAMETHASONE SODIUM PHOSPHATE
     Indication: Prophylaxis of nausea and vomiting
     Dosage: UNK UNK, 1X/2 WEEKS
     Route: 042
     Dates: start: 20210319, end: 20210427
  5. DEXAMETHASONE SODIUM PHOSPHATE [Concomitant]
     Active Substance: DEXAMETHASONE SODIUM PHOSPHATE
     Dosage: UNK UNK, 1X/2 WEEKS
     Route: 042
     Dates: start: 20210511, end: 20210730
  6. EPIRUBICIN HYDROCHLORIDE [Concomitant]
     Active Substance: EPIRUBICIN HYDROCHLORIDE
     Indication: Breast cancer
     Dosage: UNK, 1X/2 WEEKS
     Route: 041
     Dates: start: 20210319, end: 20210427
  7. CYCLOPHOSPHAMIDE [Concomitant]
     Active Substance: CYCLOPHOSPHAMIDE
     Indication: Breast cancer
     Dosage: UNK, 1X/2 WEEKS
     Route: 065
     Dates: start: 20210319, end: 20210427
  8. MAGNESIUM OXIDE [Concomitant]
     Active Substance: MAGNESIUM OXIDE
     Indication: Constipation prophylaxis
     Dosage: UNK
     Dates: start: 20210319, end: 20210801
  9. DOMPERIDONE [Concomitant]
     Active Substance: DOMPERIDONE
     Indication: Prophylaxis of nausea and vomiting
     Dosage: 10 MG, DOSING FREQUENCY: EVERY DAY, ON AN AS NEEDED BASIS DURATION OF ADMINISTRATION: AS NEEDED
     Route: 048
     Dates: start: 20220502, end: 20220720
  10. SENNOSIDE A [Concomitant]
     Active Substance: SENNOSIDE A
     Indication: Prophylaxis of nausea and vomiting
     Dosage: 12 MILLIGRAM
     Route: 048
     Dates: start: 20220502, end: 20220720
  11. DECADRON [Concomitant]
     Active Substance: DEXAMETHASONE
     Indication: Prophylaxis of nausea and vomiting
     Dosage: UNK
     Dates: start: 20210319, end: 20210801
  12. FLUOROURACIL [Concomitant]
     Active Substance: FLUOROURACIL
     Indication: Breast cancer
     Dosage: 500 MILLIGRAM/SQ. METER, QWK
     Route: 040
     Dates: start: 20220502, end: 20220704
  13. PALONOSETRON [Concomitant]
     Active Substance: PALONOSETRON
     Indication: Prophylaxis of nausea and vomiting
     Dosage: UNK, 1X/3 WEEKS
     Route: 065
     Dates: start: 20210319, end: 20210427
  14. LENOGRASTIM [Concomitant]
     Active Substance: LENOGRASTIM
     Indication: Neutrophil count decreased
     Dosage: 100 UG, FIRST CYCLE, DAY10, DAY11
     Route: 058
     Dates: start: 20220511, end: 20220512

REACTIONS (3)
  - Pulmonary toxicity [Recovered/Resolved]
  - Rash [Recovered/Resolved]
  - Leukocytosis [Recovering/Resolving]

NARRATIVE: CASE EVENT DATE: 20210402
